FAERS Safety Report 19716770 (Version 2)
Quarter: 2021Q3

REPORT INFORMATION
  Report Type: Spontaneous
  Country: US (occurrence: US)
  Receive Date: 20210819
  Receipt Date: 20210826
  Transmission Date: 20211014
  Serious: Yes (Hospitalization)
  Sender: FDA-Public Use
  Company Number: US-UNITED THERAPEUTICS-UNT-2021-015902

PATIENT
  Age: 59 Year
  Sex: Female
  Weight: 95.24 kg

DRUGS (4)
  1. OPSUMIT [Concomitant]
     Active Substance: MACITENTAN
     Indication: PRODUCT USED FOR UNKNOWN INDICATION
     Dosage: 10 MG, DAILY
     Route: 065
  2. REMODULIN [Suspect]
     Active Substance: TREPROSTINIL
     Indication: PULMONARY ARTERIAL HYPERTENSION
     Dosage: UNK, CONTINUING
     Route: 058
     Dates: start: 20170228
  3. REMODULIN [Suspect]
     Active Substance: TREPROSTINIL
     Dosage: 0.097 ?G/KG, CONTINUING
     Route: 058
     Dates: end: 202108
  4. REMODULIN [Suspect]
     Active Substance: TREPROSTINIL
     Dosage: 0.110 ?G/KG, CONTINUING
     Route: 058
     Dates: start: 202108

REACTIONS (5)
  - Purulent discharge [Unknown]
  - Infusion site haemorrhage [Unknown]
  - Abdominal pain upper [Unknown]
  - Infusion site discharge [Unknown]
  - Incorrect dose administered [Unknown]

NARRATIVE: CASE EVENT DATE: 202108
